FAERS Safety Report 14026327 (Version 1)
Quarter: 2017Q3

REPORT INFORMATION
  Report Type: Report from Study
  Country: DE (occurrence: DE)
  Receive Date: 20170929
  Receipt Date: 20170929
  Transmission Date: 20171128
  Serious: Yes (Hospitalization, Other)
  Sender: FDA-Public Use
  Company Number: DE-BRISTOL-MYERS SQUIBB COMPANY-BMS-2017-004737

PATIENT
  Age: 70 Year
  Sex: Female

DRUGS (2)
  1. APIXABAN [Suspect]
     Active Substance: APIXABAN
     Indication: CEREBROVASCULAR ACCIDENT PROPHYLAXIS
     Dosage: 5 MG, BID
     Route: 048
  2. APIXABAN [Suspect]
     Active Substance: APIXABAN
     Indication: PRODUCT USED FOR UNKNOWN INDICATION
     Dosage: UNK
     Route: 065

REACTIONS (9)
  - Gastric polyps [Recovered/Resolved]
  - Renal impairment [Unknown]
  - Blood glucose abnormal [Recovered/Resolved]
  - Gastric polypectomy [Recovered/Resolved]
  - Vertigo [Unknown]
  - Blood glucose increased [Recovered/Resolved]
  - Liver function test abnormal [Unknown]
  - Insulin resistance [Recovered/Resolved]
  - Cardiac fibrillation [Unknown]

NARRATIVE: CASE EVENT DATE: 20160901
